FAERS Safety Report 7875274-5 (Version None)
Quarter: 2011Q4

REPORT INFORMATION
  Report Type: 
  Country: None (occurrence: None)
  Receive Date: 20111031
  Receipt Date: 20110816
  Transmission Date: 20120403
  Serious: Yes (Hospitalization, Other)
  Sender: FDA-Public Use
  Company Number: US-BAYER-2010-001134

PATIENT
  Age: 59 Year
  Sex: Male
  Weight: 106.58 kg

DRUGS (11)
  1. MAGNESIUM OXIDE [Concomitant]
  2. HUMALOG [Concomitant]
  3. VITAMIN D [Concomitant]
  4. LASIX [Concomitant]
  5. LANTUS [Concomitant]
  6. NEXAVAR [Suspect]
     Indication: HEPATIC NEOPLASM MALIGNANT
     Dosage: 200 MG, BID
     Route: 048
     Dates: start: 20101020, end: 20101109
  7. WARFARIN SODIUM [Concomitant]
  8. FOLIC ACID [Concomitant]
  9. OMEPRAZOLE [Concomitant]
  10. NADOLOL [Concomitant]
  11. SPIRONOLACTONE [Concomitant]

REACTIONS (11)
  - URINARY TRACT INFECTION [None]
  - ENCEPHALOPATHY [None]
  - AMMONIA INCREASED [None]
  - PRURITUS [None]
  - FATIGUE [None]
  - ASCITES [None]
  - JAUNDICE [None]
  - ASTHENIA [None]
  - CONFUSIONAL STATE [None]
  - HEPATIC FAILURE [None]
  - CHROMATURIA [None]
